FAERS Safety Report 6199730-3 (Version None)
Quarter: 2009Q2

REPORT INFORMATION
  Report Type: 
  Country: None (occurrence: None)
  Receive Date: 20090520
  Receipt Date: 20090520
  Transmission Date: 20091009
  Serious: Yes (Hospitalization)
  Sender: FDA-Public Use
  Company Number: None

PATIENT
  Sex: Female
  Weight: 72 kg

DRUGS (6)
  1. DAUNORUBICIN HCL [Suspect]
     Dosage: 85 MG
     Dates: end: 20090513
  2. METHOTREXATE [Suspect]
     Dosage: 15 MG
     Dates: end: 20090513
  3. PEG-L-ASPARAGINASE (K-H) [Suspect]
     Dosage: 4252.5 UNIT
     Dates: end: 20090509
  4. PREDNISONE [Suspect]
     Dosage: 1200 MG
     Dates: end: 20090518
  5. VINCRISTINE SULFATE [Suspect]
     Dosage: 4 MG
     Dates: end: 20090513
  6. CYTARABINE [Suspect]
     Dosage: 70 MG
     Dates: end: 20090505

REACTIONS (8)
  - ABDOMINAL PAIN [None]
  - BLOOD BICARBONATE DECREASED [None]
  - BLOOD SODIUM DECREASED [None]
  - GASTROINTESTINAL NECROSIS [None]
  - HYPERGLYCAEMIA [None]
  - HYPOTENSION [None]
  - INFUSION RELATED REACTION [None]
  - URTICARIA [None]
